FAERS Safety Report 16017443 (Version 1)
Quarter: 2019Q1

REPORT INFORMATION
  Report Type: Spontaneous
  Country: US (occurrence: US)
  Receive Date: 20190228
  Receipt Date: 20190228
  Transmission Date: 20190418
  Serious: Yes (Other)
  Sender: FDA-Public Use
  Company Number: US-ELI_LILLY_AND_COMPANY-US201902008738

PATIENT
  Sex: Female

DRUGS (2)
  1. PREDNISONE. [Concomitant]
     Active Substance: PREDNISONE
     Indication: PRODUCT USED FOR UNKNOWN INDICATION
  2. TRULICITY [Suspect]
     Active Substance: DULAGLUTIDE
     Indication: PRODUCT USED FOR UNKNOWN INDICATION
     Dosage: UNK UNK, UNKNOWN
     Route: 065

REACTIONS (8)
  - Injection site pain [Unknown]
  - Injection site mass [Unknown]
  - Fat tissue decreased [Unknown]
  - Injection site extravasation [Unknown]
  - Mass [Not Recovered/Not Resolved]
  - Muscle hypertrophy [Unknown]
  - Graft versus host disease [Not Recovered/Not Resolved]
  - Skin tightness [Unknown]
